FAERS Safety Report 7612333-6 (Version None)
Quarter: 2011Q3

REPORT INFORMATION
  Report Type: 
  Country: None (occurrence: None)
  Receive Date: 20110715
  Receipt Date: 20110706
  Transmission Date: 20111222
  Serious: Yes (Other)
  Sender: FDA-Public Use
  Company Number: US-ASTRAZENECA-2010SE32603

PATIENT
  Age: 64 Year
  Sex: Female

DRUGS (1)
  1. NEXIUM [Suspect]
     Route: 048

REACTIONS (10)
  - FUNCTIONAL GASTROINTESTINAL DISORDER [None]
  - FOOT FRACTURE [None]
  - DIARRHOEA [None]
  - NECK INJURY [None]
  - FIBULA FRACTURE [None]
  - TIBIA FRACTURE [None]
  - PAIN [None]
  - CHRONIC OBSTRUCTIVE PULMONARY DISEASE [None]
  - CARDIAC DISORDER [None]
  - GASTRIC DISORDER [None]
